FAERS Safety Report 9525029 (Version 2)
Quarter: 2013Q4

REPORT INFORMATION
  Report Type: Spontaneous
  Country: US (occurrence: None)
  Receive Date: 20130912
  Receipt Date: 20131024
  Transmission Date: 20140711
  Serious: Yes (Hospitalization, Other)
  Sender: FDA-Public Use
  Company Number: JPI-P-034815

PATIENT
  Age: 65 Year
  Sex: Female

DRUGS (3)
  1. XYREM [Suspect]
     Indication: SOMNOLENCE
     Route: 048
     Dates: start: 20121109
  2. XYREM [Suspect]
     Indication: NARCOLEPSY
     Route: 048
     Dates: start: 20121109
  3. BUPROPION HYDROCHLORIDE [Suspect]
     Indication: MAJOR DEPRESSION
     Dates: start: 2001

REACTIONS (13)
  - Blood pressure increased [None]
  - Cellulitis [None]
  - Clostridium difficile colitis [None]
  - Back injury [None]
  - Feeling abnormal [None]
  - Alopecia [None]
  - Apathy [None]
  - Speech disorder [None]
  - Confusional state [None]
  - Fatigue [None]
  - Depressed mood [None]
  - Tremor [None]
  - Dyspnoea [None]
